FAERS Safety Report 8208482-4 (Version None)
Quarter: 2012Q1

REPORT INFORMATION
  Report Type: 
  Country: None (occurrence: None)
  Receive Date: 20120314
  Receipt Date: 20120229
  Transmission Date: 20120608
  Serious: Yes (Other)
  Sender: FDA-Public Use
  Company Number: DE-ROCHE-1045067

PATIENT
  Sex: Female

DRUGS (1)
  1. ACTEMRA [Suspect]
     Indication: PRODUCT USED FOR UNKNOWN INDICATION

REACTIONS (6)
  - LOSS OF CONTROL OF LEGS [None]
  - CONCUSSION [None]
  - RETROGRADE AMNESIA [None]
  - FALL [None]
  - SKIN DISORDER [None]
  - DERMATITIS ACNEIFORM [None]
